FAERS Safety Report 4909611-8 (Version None)
Quarter: 2006Q1

REPORT INFORMATION
  Report Type: 
  Country: None (occurrence: None)
  Receive Date: 20060213
  Receipt Date: 20060106
  Transmission Date: 20060701
  Serious: Yes (Hospitalization, Other)
  Sender: FDA-Public Use
  Company Number: US-MERCK-0601USA00859

PATIENT
  Age: 47 Year
  Sex: Female
  Weight: 55 kg

DRUGS (2)
  1. VIOXX [Suspect]
     Indication: ARTHRITIS
     Route: 048
     Dates: start: 20020609, end: 20040901
  2. OS-CAL [Concomitant]
     Route: 065

REACTIONS (8)
  - CARDIAC MURMUR [None]
  - GASTROOESOPHAGEAL REFLUX DISEASE [None]
  - ISCHAEMIC STROKE [None]
  - LUNG DISORDER [None]
  - OCULAR VASCULAR DISORDER [None]
  - PARATHYROID DISORDER [None]
  - PARATHYROIDECTOMY [None]
  - PERITONITIS [None]
